FAERS Safety Report 4710803-1 (Version None)
Quarter: 2005Q2

REPORT INFORMATION
  Report Type: 
  Country: None (occurrence: None)
  Receive Date: 20050629
  Receipt Date: 20050414
  Transmission Date: 20051028
  Serious: No
  Sender: FDA-Public Use
  Company Number: 03P-163-0222988-00

PATIENT
  Sex: Female

DRUGS (8)
  1. HUMIRA [Suspect]
     Indication: RHEUMATOID ARTHRITIS
     Dosage: SEE IMAGE
     Route: 058
     Dates: start: 20030501, end: 20031020
  2. HUMIRA [Suspect]
     Indication: RHEUMATOID ARTHRITIS
     Dosage: SEE IMAGE
     Route: 058
     Dates: start: 20031020
  3. HYDROXYCHLOROQUINE PHOSPHATE [Suspect]
     Dosage: PER ORAL
     Route: 048
  4. SIMVASTATIN [Concomitant]
  5. MELOXICAM [Concomitant]
  6. RABEPRAZOLE SODIUM [Concomitant]
  7. HYDROXYCHLOROQUINE PHOSPHATE [Concomitant]
  8. PREDNISONE TAB [Concomitant]

REACTIONS (5)
  - INJECTION SITE ERYTHEMA [None]
  - INJECTION SITE HAEMORRHAGE [None]
  - INJECTION SITE IRRITATION [None]
  - INJECTION SITE VESICLES [None]
  - RASH PAPULAR [None]
